FAERS Safety Report 4784018-5 (Version None)
Quarter: 2005Q3

REPORT INFORMATION
  Report Type: 
  Country: None (occurrence: None)
  Receive Date: 20050927
  Receipt Date: 20050614
  Transmission Date: 20060218
  Serious: No
  Sender: FDA-Public Use
  Company Number: USA050187386

PATIENT
  Age: 14 Year
  Sex: Male
  Weight: 73 kg

DRUGS (1)
  1. STRATTERA [Suspect]
     Indication: ATTENTION DEFICIT/HYPERACTIVITY DISORDER
     Dosage: 60 MG/1 IN THE MORNING
     Dates: start: 20040901

REACTIONS (4)
  - DRUG INEFFECTIVE [None]
  - GROWTH RETARDATION [None]
  - INSOMNIA [None]
  - NASAL CONGESTION [None]
